FAERS Safety Report 9750079 (Version 1)
Quarter: 2013Q4

REPORT INFORMATION
  Report Type: Spontaneous
  Country: US (occurrence: US)
  Receive Date: 20131212
  Receipt Date: 20131212
  Transmission Date: 20140711
  Serious: No
  Sender: FDA-Public Use
  Company Number: US-GILEAD-US-CVT-090809

PATIENT
  Sex: Male

DRUGS (3)
  1. RANEXA [Suspect]
     Indication: ANGINA PECTORIS
  2. NIASPAN [Concomitant]
  3. ISOSORBIDE [Concomitant]

REACTIONS (2)
  - Pruritus [Unknown]
  - Flushing [Unknown]
